FAERS Safety Report 10308939 (Version 1)
Quarter: 2014Q3

REPORT INFORMATION
  Report Type: Spontaneous
  Country: US (occurrence: US)
  Receive Date: 20140716
  Receipt Date: 20140716
  Transmission Date: 20150326
  Serious: Yes (Life-Threatening)
  Sender: FDA-Public Use
  Company Number: US-MERCK-1407USA007025

PATIENT
  Age: 50 Year
  Sex: Male

DRUGS (2)
  1. PEGINTERFERON ALFA-2B [Suspect]
     Active Substance: PEGINTERFERON ALFA-2B
     Indication: HEPATITIS C
     Dosage: 180 MICROGRAM WEEKLY UNDER THE SKIN ONE HOUR BEFORE BEDTIME ON FRIDAYS
     Route: 058
     Dates: start: 20120224, end: 20120504
  2. VICTRELIS [Suspect]
     Active Substance: BOCEPREVIR
     Indication: HEPATITIS C
     Dosage: 4 CAPSULES EVERY 8 HOURS
     Route: 048
     Dates: start: 20120224, end: 20120504

REACTIONS (2)
  - Suicidal ideation [Unknown]
  - Substance abuse [Unknown]

NARRATIVE: CASE EVENT DATE: 20120504
